FAERS Safety Report 18249380 (Version 1)
Quarter: 2020Q3

REPORT INFORMATION
  Report Type: Spontaneous
  Country: US (occurrence: US)
  Receive Date: 20200909
  Receipt Date: 20200909
  Transmission Date: 20201103
  Serious: No
  Sender: FDA-Public Use
  Company Number: US-LUPIN PHARMACEUTICALS INC.-2020-05134

PATIENT
  Age: 48 Year
  Sex: Female

DRUGS (6)
  1. METHYLPREDNISOLONE. [Suspect]
     Active Substance: METHYLPREDNISOLONE
     Indication: PLASMA CELL MYELOMA
  2. METHYLPREDNISOLONE. [Suspect]
     Active Substance: METHYLPREDNISOLONE
     Indication: XANTHOGRANULOMA
     Dosage: 40 MILLIGRAM, EVERY OTHER DAY
     Route: 048
     Dates: end: 201903
  3. LENALIDOMIDE [Suspect]
     Active Substance: LENALIDOMIDE
     Indication: XANTHOGRANULOMA
     Dosage: 10 MILLIGRAM, QD
     Route: 048
     Dates: start: 201808, end: 201903
  4. LENALIDOMIDE [Suspect]
     Active Substance: LENALIDOMIDE
     Indication: PLASMA CELL MYELOMA
  5. CRISABOROLE [Concomitant]
     Active Substance: CRISABOROLE
     Indication: XANTHOGRANULOMA
     Dosage: UNK UNK, BID
     Route: 061
     Dates: start: 201811
  6. CRISABOROLE [Concomitant]
     Active Substance: CRISABOROLE
     Indication: PLASMA CELL MYELOMA

REACTIONS (4)
  - Gastrointestinal disorder [Unknown]
  - Therapeutic response changed [Unknown]
  - Alopecia [Unknown]
  - Headache [Unknown]
